FAERS Safety Report 6932491-6 (Version None)
Quarter: 2010Q3

REPORT INFORMATION
  Report Type: 
  Country: None (occurrence: None)
  Receive Date: 20100819
  Receipt Date: 20100816
  Transmission Date: 20110219
  Serious: Yes (Hospitalization, Disabling)
  Sender: FDA-Public Use
  Company Number: US-MERCK-1008USA01904

PATIENT
  Age: 67 Year
  Sex: Male

DRUGS (10)
  1. JANUVIA [Suspect]
     Indication: TYPE 2 DIABETES MELLITUS
     Route: 048
     Dates: start: 20100729, end: 20100810
  2. PLAVIX [Concomitant]
     Route: 065
  3. LIPITOR [Concomitant]
     Route: 065
  4. METFORMIN [Concomitant]
     Route: 065
  5. CYMBALTA [Concomitant]
     Route: 065
  6. COZAAR [Concomitant]
     Route: 048
  7. PEPCID [Concomitant]
     Route: 048
  8. ASPIRIN [Concomitant]
     Route: 065
  9. TOPROL-XL [Concomitant]
     Route: 065
  10. SPIRONOLACTONE [Concomitant]
     Route: 065

REACTIONS (1)
  - POLYARTHRITIS [None]
